FAERS Safety Report 5612299-4 (Version None)
Quarter: 2008Q1

REPORT INFORMATION
  Report Type: 
  Country: None (occurrence: None)
  Receive Date: 20080131
  Receipt Date: 20080131
  Transmission Date: 20080703
  Serious: Yes (Other)
  Sender: FDA-Public Use
  Company Number: None

PATIENT
  Age: 50 Year
  Sex: Female

DRUGS (4)
  1. BUPROPION SR 150MG [Suspect]
     Indication: MAJOR DEPRESSION
     Dosage: TWICE PO QAM TWICE PO QNOON
     Route: 048
     Dates: start: 20030327
  2. CYMBALTA [Concomitant]
  3. PROVIGIL [Concomitant]
  4. SEROQUEL [Concomitant]

REACTIONS (4)
  - CONVULSION [None]
  - DRUG INEFFECTIVE [None]
  - DRUG LEVEL FLUCTUATING [None]
  - PHARMACEUTICAL PRODUCT COMPLAINT [None]
